FAERS Safety Report 13998851 (Version 2)
Quarter: 2018Q2

REPORT INFORMATION
  Report Type: Not Available
  Country: US (occurrence: US)
  Receive Date: 20170921
  Receipt Date: 20180419
  Transmission Date: 20180711
  Serious: No
  Sender: FDA-Public Use
  Company Number: US-NEUROCRINE BIOSCIENCES INC.-2017NBI00687

PATIENT
  Age: 65 Year
  Sex: Male
  Weight: 99.88 kg

DRUGS (12)
  1. TEMAZEPAM. [Concomitant]
     Active Substance: TEMAZEPAM
     Indication: MUSCLE SPASMS
  2. ACETAMINOPHEN/NSAID/ASPIRIN/CAFFEINE [Concomitant]
  3. LINOLEIC ACID [Concomitant]
     Active Substance: LINOLEIC ACID
  4. TRAZODONE [Concomitant]
     Active Substance: TRAZODONE HYDROCHLORIDE
  5. PAXIL [Concomitant]
     Active Substance: PAROXETINE HYDROCHLORIDE
  6. LISINOPRIL. [Concomitant]
     Active Substance: LISINOPRIL
  7. AMLODIPINE [Concomitant]
     Active Substance: AMLODIPINE BESYLATE
  8. INGREZZA [Suspect]
     Active Substance: VALBENAZINE
     Indication: TARDIVE DYSKINESIA
     Dosage: AT BEDTIME
     Route: 048
     Dates: start: 20170620
  9. SIMVASTATIN. [Concomitant]
     Active Substance: SIMVASTATIN
  10. KLONOPIN [Concomitant]
     Active Substance: CLONAZEPAM
  11. ESZOPICLONE. [Concomitant]
     Active Substance: ESZOPICLONE
  12. TEMAZEPAM. [Concomitant]
     Active Substance: TEMAZEPAM
     Indication: ANXIETY
     Route: 048

REACTIONS (2)
  - Nasal congestion [Not Recovered/Not Resolved]
  - Bruxism [Unknown]

NARRATIVE: CASE EVENT DATE: 20180203
